FAERS Safety Report 8999036 (Version 2)
Quarter: 2013Q2

REPORT INFORMATION
  Report Type: Spontaneous
  Country: BR (occurrence: BR)
  Receive Date: 20130103
  Receipt Date: 20130419
  Transmission Date: 20140414
  Serious: Yes (Hospitalization)
  Sender: FDA-Public Use
  Company Number: BR-BAYER-2012-136002

PATIENT
  Age: 31 Year
  Sex: Female
  Weight: 49.89 kg

DRUGS (13)
  1. YASMIN [Suspect]
     Dosage: UNK
     Route: 048
     Dates: start: 200601, end: 20121220
  2. YASMIN [Suspect]
     Dosage: UNK
     Dates: start: 201303
  3. ZINA [Concomitant]
     Indication: ANGIOEDEMA
     Dosage: 1 DF, PRN
     Route: 048
     Dates: start: 201210
  4. ZINA [Concomitant]
     Indication: ANGIOEDEMA
     Dosage: UNK
     Dates: start: 201212, end: 201302
  5. ZINA [Concomitant]
     Indication: ANGIOEDEMA
     Dosage: UNK
     Dates: start: 201212, end: 201302
  6. ZINA [Concomitant]
     Indication: ANGIOEDEMA
     Dosage: 1 DF, PRN
     Route: 048
     Dates: start: 201210
  7. CIPROFLOXACIN [Concomitant]
     Indication: FOOD POISONING
     Dosage: UNK
     Route: 042
     Dates: start: 20121210, end: 20121212
  8. CIPROFLOXACIN [Concomitant]
     Indication: FOOD POISONING
     Dosage: 1 DF, BID
     Route: 048
     Dates: start: 20121212, end: 20121219
  9. PLAMET [Concomitant]
     Indication: FOOD POISONING
     Dosage: UNK
     Route: 042
     Dates: start: 20121210, end: 20121212
  10. BUSCOPAN [Concomitant]
     Indication: FOOD POISONING
     Dosage: UNK
     Route: 042
     Dates: start: 20121210, end: 20121212
  11. CIPROFLOXACIN [Concomitant]
     Indication: FOOD POISONING
     Dosage: 1 DF, BID
     Route: 048
     Dates: start: 20121212, end: 20121219
  12. DIPYRONE [Concomitant]
  13. ANTIINFLAMMATORIES NOS [Concomitant]

REACTIONS (6)
  - Diarrhoea [Recovered/Resolved]
  - Menstruation delayed [Recovered/Resolved]
  - Drug hypersensitivity [Recovered/Resolved]
  - Swelling face [Recovered/Resolved]
  - Lip swelling [Recovered/Resolved]
  - Eye swelling [Recovered/Resolved]
